FAERS Safety Report 6333443-X (Version None)
Quarter: 2009Q3

REPORT INFORMATION
  Report Type: 
  Country: None (occurrence: None)
  Receive Date: 20090828
  Receipt Date: 20090818
  Transmission Date: 20100115
  Serious: Yes (Hospitalization)
  Sender: FDA-Public Use
  Company Number: PHHY2009FR36112

PATIENT
  Age: 58 Year
  Sex: Male

DRUGS (6)
  1. NISISCO [Suspect]
     Dosage: 160/12.5MG
     Route: 048
  2. AMBROXOL [Suspect]
     Dosage: UNK
     Route: 048
     Dates: start: 20090327, end: 20090504
  3. DILTIAZEM [Suspect]
     Dosage: 200 MG, UNK
     Route: 048
  4. SERETIDE DISKUS [Concomitant]
  5. SPIRIVA [Concomitant]
  6. XYZAL [Concomitant]

REACTIONS (9)
  - BLISTER [None]
  - INTRA-ABDOMINAL HAEMATOMA [None]
  - LEUKOCYTOCLASTIC VASCULITIS [None]
  - LUNG DISORDER [None]
  - NODULE [None]
  - PETECHIAE [None]
  - PURPURA [None]
  - SKIN LESION [None]
  - SKIN NECROSIS [None]
